FAERS Safety Report 8445035-7 (Version None)
Quarter: 2012Q2

REPORT INFORMATION
  Report Type: 
  Country: None (occurrence: None)
  Receive Date: 20120618
  Receipt Date: 20120606
  Transmission Date: 20120825
  Serious: Yes (Hospitalization)
  Sender: FDA-Public Use
  Company Number: JP-NOVOPROD-351357

PATIENT
  Age: 61 Year
  Sex: Male
  Weight: 82 kg

DRUGS (10)
  1. NOVOLIN R [Suspect]
     Indication: TYPE 2 DIABETES MELLITUS
     Dosage: 34 U, QD (18-12-4UT)
     Route: 058
  2. DIOVAN [Concomitant]
     Dosage: 40 MG, QD
  3. AMLODIPINE [Concomitant]
     Indication: HYPERTENSION
     Dosage: 5 MG, QD
     Route: 048
  4. ACTOS [Concomitant]
     Dosage: 15 MG, QD
  5. NOVORAPID CHU FLEXPEN [Suspect]
     Indication: TYPE 2 DIABETES MELLITUS
     Dosage: 90 U, QD (28-30-32UT)
     Route: 058
  6. NOVORAPID CHU FLEXPEN [Suspect]
     Dosage: 50 U, QD
     Route: 058
  7. RASILEZ [Concomitant]
     Dosage: 150 MG, QD
  8. PRAVASTATIN SODIUM [Concomitant]
     Indication: DYSLIPIDAEMIA
     Dosage: 10 MG, QD
     Route: 048
  9. LANTUS [Concomitant]
     Dosage: 22 U, QD
  10. VOGLIBOSE [Concomitant]
     Dosage: 0.9 MG, QD

REACTIONS (3)
  - DIABETES MELLITUS INADEQUATE CONTROL [None]
  - HYPOGLYCAEMIA [None]
  - ANTI-INSULIN ANTIBODY POSITIVE [None]
